FAERS Safety Report 15171450 (Version 2)
Quarter: 2018Q3

REPORT INFORMATION
  Report Type: Report from Study
  Country: IT (occurrence: IT)
  Receive Date: 20180720
  Receipt Date: 20180831
  Transmission Date: 20181010
  Serious: Yes (Other)
  Sender: FDA-Public Use
  Company Number: IT-PFIZER INC-2018290922

PATIENT
  Age: 62 Year
  Sex: Female

DRUGS (2)
  1. DENIBAN [Concomitant]
     Active Substance: AMISULPRIDE
     Dosage: UNK
  2. LORAZEPAM. [Suspect]
     Active Substance: LORAZEPAM
     Indication: PERSONALITY DISORDER
     Dosage: 175 MG, SINGLE
     Route: 048
     Dates: start: 20180511, end: 20180511

REACTIONS (6)
  - Irritability [Recovering/Resolving]
  - Vomiting [Recovering/Resolving]
  - C-reactive protein increased [Unknown]
  - Overdose [Recovering/Resolving]
  - Somnolence [Recovering/Resolving]
  - Sopor [Recovering/Resolving]

NARRATIVE: CASE EVENT DATE: 20180511
